FAERS Safety Report 20050247 (Version 1)
Quarter: 2021Q4

REPORT INFORMATION
  Report Type: Spontaneous
  Country: US (occurrence: US)
  Receive Date: 20211109
  Receipt Date: 20211109
  Transmission Date: 20220303
  Serious: No
  Sender: FDA-Public Use
  Company Number: US-BAUSCH-BL-2021-036595

PATIENT
  Age: 27 Year
  Sex: Female
  Weight: 72.640 kg

DRUGS (2)
  1. BUPROPION [Suspect]
     Active Substance: BUPROPION
     Indication: Perinatal depression
     Route: 048
     Dates: start: 2021
  2. BUPROPION [Suspect]
     Active Substance: BUPROPION
     Indication: Postpartum anxiety

REACTIONS (1)
  - Parosmia [Unknown]

NARRATIVE: CASE EVENT DATE: 20210101
